FAERS Safety Report 8827395 (Version 1)
Quarter: 2012Q4

REPORT INFORMATION
  Report Type: 
  Country: US (occurrence: US)
  Receive Date: 20121005
  Receipt Date: 20121005
  Transmission Date: 20130627
  Serious: No
  Sender: FDA-Public Use
  Company Number: US-BRISTOL-MYERS SQUIBB COMPANY-16406225

PATIENT
  Age: 66 Year
  Sex: Male
  Weight: 90 kg

DRUGS (2)
  1. AVAPRO [Suspect]
     Dosage: 08Feb2012 - 12Feb2012(1tab).dose increased to 150mg BID until 15Feb2012. Exp:Aug14
     Dates: start: 20120208
  2. CLONIDINE [Suspect]
     Dosage: 2 tablets until 12Feb2012
returned  to 3 tablets daily

REACTIONS (4)
  - Hypertension [Unknown]
  - Head discomfort [Unknown]
  - Insomnia [Unknown]
  - Anxiety [Unknown]
